FAERS Safety Report 26125158 (Version 1)
Quarter: 2025Q4

REPORT INFORMATION
  Report Type: Other
  Country: EU (occurrence: EU)
  Receive Date: 20251205
  Receipt Date: 20251205
  Transmission Date: 20260117
  Serious: Yes (Hospitalization)
  Sender: Atnahs Healthcare
  Company Number: None

PATIENT

DRUGS (12)
  1. DIAZEPAM [Suspect]
     Active Substance: DIAZEPAM
     Indication: Anxiety
     Dosage: 5 MG, DAILY
     Route: 048
     Dates: start: 20250522, end: 20250523
  2. DIAZEPAM [Suspect]
     Active Substance: DIAZEPAM
     Dosage: 10 MG, DAILY
     Route: 048
     Dates: start: 20250524, end: 20250602
  3. DIAZEPAM [Suspect]
     Active Substance: DIAZEPAM
     Dosage: 5 MG, DAILY
     Route: 048
     Dates: start: 20250603, end: 20250629
  4. MORPHINE [Suspect]
     Active Substance: MORPHINE
     Indication: Back pain
     Dosage: 0.5 MG, Q1HR
     Route: 042
     Dates: start: 20250522, end: 20250525
  5. MORPHINE [Suspect]
     Active Substance: MORPHINE
     Dosage: 1.5 MG Q1HR
     Route: 042
     Dates: start: 20250525, end: 20250617
  6. MORPHINE [Suspect]
     Active Substance: MORPHINE
     Dosage: 30 MG
     Route: 048
     Dates: start: 20250617, end: 20250623
  7. MORPHINE [Suspect]
     Active Substance: MORPHINE
     Dosage: 20 MG
     Route: 048
     Dates: start: 20250624, end: 20250801
  8. NEFOPAM [Suspect]
     Active Substance: NEFOPAM
     Indication: Back pain
     Dosage: 30 MG, DAILY
     Route: 048
     Dates: start: 20250525, end: 20250620
  9. DOLIPRANE [Suspect]
     Active Substance: ACETAMINOPHEN
     Indication: Back pain
     Dosage: 1 G Q8HR
     Route: 048
     Dates: start: 20250523, end: 20250610
  10. BISOPROLOL FUMARATE [Concomitant]
     Active Substance: BISOPROLOL FUMARATE
     Indication: Hypertension
     Dosage: 1.25 MG, DAILY
     Route: 048
  11. SIMVASTATIN [Concomitant]
     Active Substance: SIMVASTATIN
     Indication: Dyslipidaemia
     Dosage: 20 MG, DAILY
     Route: 048
  12. TRUXIMA [Concomitant]
     Active Substance: RITUXIMAB-ABBS
     Indication: Rheumatoid arthritis
     Dosage: 1000 MG
     Route: 048

REACTIONS (1)
  - Cholestasis [Recovered/Resolved]

NARRATIVE: CASE EVENT DATE: 20250526
